FAERS Safety Report 9259184 (Version 1)
Quarter: 2013Q2

REPORT INFORMATION
  Report Type: Report from Study
  Country: US (occurrence: US)
  Receive Date: 20130426
  Receipt Date: 20130426
  Transmission Date: 20140414
  Serious: Yes (Other)
  Sender: FDA-Public Use
  Company Number: US-US-EMD SERONO, INC.-7207098

PATIENT
  Age: 44 Year
  Sex: Female

DRUGS (1)
  1. REBIF [Suspect]
     Indication: PRODUCT USED FOR UNKNOWN INDICATION
     Route: 058
     Dates: start: 20120301

REACTIONS (5)
  - Systemic lupus erythematosus [Unknown]
  - Haemorrhage [Unknown]
  - Arthralgia [Unknown]
  - Injection site swelling [Unknown]
  - Injection site nodule [Unknown]
